FAERS Safety Report 5404751-1 (Version None)
Quarter: 2007Q3

REPORT INFORMATION
  Report Type: 
  Country: None (occurrence: None)
  Receive Date: 20070801
  Receipt Date: 20070717
  Transmission Date: 20080115
  Serious: Yes (Hospitalization)
  Sender: FDA-Public Use
  Company Number: MIN-00186

PATIENT
  Age: 35 Year
  Sex: Female

DRUGS (1)
  1. MINOCYCLINE HCL [Suspect]
     Indication: CUTANEOUS SARCOIDOSIS
     Dosage: 200 MG DAILY, PO
     Route: 048

REACTIONS (2)
  - PAPILLARY THYROID CANCER [None]
  - THYROID DISORDER [None]
